FAERS Safety Report 17004627 (Version 2)
Quarter: 2021Q1

REPORT INFORMATION
  Report Type: Spontaneous
  Country: US (occurrence: US)
  Receive Date: 20191107
  Receipt Date: 20210121
  Transmission Date: 20210419
  Serious: No
  Sender: FDA-Public Use
  Company Number: US-PFIZER INC-2019480100

PATIENT
  Age: 71 Year
  Sex: Female

DRUGS (1)
  1. SUTENT [Suspect]
     Active Substance: SUNITINIB MALATE
     Indication: RENAL CANCER
     Dosage: UNK
     Dates: start: 201406, end: 201409

REACTIONS (5)
  - Dyspepsia [Unknown]
  - Neoplasm progression [Unknown]
  - Anaemia [Unknown]
  - Platelet count decreased [Unknown]
  - White blood cell count decreased [Unknown]
